FAERS Safety Report 9632522 (Version 2)
Quarter: 2013Q4

REPORT INFORMATION
  Report Type: Spontaneous
  Country: US (occurrence: US)
  Receive Date: 20131018
  Receipt Date: 20131018
  Transmission Date: 20140711
  Serious: Yes (Death, Other)
  Sender: FDA-Public Use
  Company Number: US-BRISTOL-MYERS SQUIBB COMPANY-18572966

PATIENT
  Age: 71 Year
  Sex: Male

DRUGS (8)
  1. BYETTA PEN DISPOSABLE [Suspect]
     Indication: TYPE 2 DIABETES MELLITUS
     Route: 058
     Dates: start: 20050111
  2. ALTACE [Concomitant]
  3. CRESTOR [Concomitant]
  4. LANTUS [Concomitant]
  5. COUMADIN [Concomitant]
  6. NOVOLOG [Concomitant]
  7. PLAVIX [Concomitant]
  8. ASPIRIN [Concomitant]

REACTIONS (1)
  - Pancreatic carcinoma [Fatal]
